FAERS Safety Report 4383696-2 (Version None)
Quarter: 2004Q2

REPORT INFORMATION
  Report Type: 
  Country: None (occurrence: None)
  Receive Date: 20040623
  Receipt Date: 20040618
  Transmission Date: 20050107
  Serious: Yes (Other)
  Sender: FDA-Public Use
  Company Number: US-BRISTOL-MYERS SQUIBB COMPANY-12620860

PATIENT

DRUGS (1)
  1. SUSTIVA [Suspect]

REACTIONS (1)
  - CHOLESTASIS [None]
